FAERS Safety Report 25764608 (Version 1)
Quarter: 2025Q3

REPORT INFORMATION
  Report Type: Spontaneous
  Country: US (occurrence: US)
  Receive Date: 20250905
  Receipt Date: 20250905
  Transmission Date: 20251020
  Serious: No
  Sender: DOMPE FARMACEUTICI
  Company Number: US-FARMAPROD-202501-0183

PATIENT
  Sex: Female

DRUGS (42)
  1. OXERVATE [Suspect]
     Active Substance: CENEGERMIN-BKBJ
     Indication: Neurotrophic keratopathy
     Route: 047
     Dates: start: 20241231
  2. SYSTANE (HYPROMELLOSE 2910 (4000 MPA.S)) [Concomitant]
     Active Substance: HYPROMELLOSE 2910 (4000 MPA.S)
  3. NITROGLYCERIN [Concomitant]
     Active Substance: NITROGLYCERIN
  4. VITAMIN C [Concomitant]
     Active Substance: ASCORBIC ACID
  5. ASPIRIN [Concomitant]
     Active Substance: ASPIRIN
  6. IRON [Concomitant]
     Active Substance: IRON
  7. VITAMIN B12 [Concomitant]
     Active Substance: CYANOCOBALAMIN
  8. VITAMIN D3 [Concomitant]
     Active Substance: CHOLECALCIFEROL
  9. CARVEDILOL [Concomitant]
     Active Substance: CARVEDILOL
  10. CARVEDILOL [Concomitant]
     Active Substance: CARVEDILOL
  11. FUROSEMIDE [Concomitant]
     Active Substance: FUROSEMIDE
  12. ONDANSETRON HYDROCHLORIDE [Concomitant]
     Active Substance: ONDANSETRON HYDROCHLORIDE
  13. ROSUVASTATIN CALCIUM [Concomitant]
     Active Substance: ROSUVASTATIN CALCIUM
  14. ROSUVASTATIN CALCIUM [Concomitant]
     Active Substance: ROSUVASTATIN CALCIUM
  15. ISOSORBIDE MONONITRATE [Concomitant]
     Active Substance: ISOSORBIDE MONONITRATE
  16. ARTIFICIAL TEARS [Concomitant]
     Dates: start: 2015
  17. DIETARY SUPPLEMENT [Concomitant]
     Active Substance: DIETARY SUPPLEMENT
  18. ELIQUIS [Concomitant]
     Active Substance: APIXABAN
  19. SODIUM BICARBONATE [Concomitant]
     Active Substance: SODIUM BICARBONATE
  20. BENZONATATE [Concomitant]
     Active Substance: BENZONATATE
  21. TRAMADOL [Concomitant]
     Active Substance: TRAMADOL
  22. AMLODIPINE [Concomitant]
     Active Substance: AMLODIPINE BESYLATE
  23. FERROCITE [Concomitant]
     Active Substance: FERROUS FUMARATE
  24. OXYCODONE [Concomitant]
     Active Substance: OXYCODONE
  25. POLYETHYLENE GLYCOL 3350 [Concomitant]
     Active Substance: POLYETHYLENE GLYCOL 3350
  26. NYSTATIN [Concomitant]
     Active Substance: NYSTATIN
  27. OMEPRAZOLE [Concomitant]
     Active Substance: OMEPRAZOLE
  28. CEPHALEXIN [Concomitant]
     Active Substance: CEPHALEXIN
  29. VALSARTAN [Concomitant]
     Active Substance: VALSARTAN
  30. VALSARTAN [Concomitant]
     Active Substance: VALSARTAN
  31. KETOROLAC [Concomitant]
     Active Substance: KETOROLAC TROMETHAMINE
  32. BRINZOLAMIDE [Concomitant]
     Active Substance: BRINZOLAMIDE
  33. BACITRACIN;POLYMYXIN B [Concomitant]
  34. CLOPIDOGREL [Concomitant]
     Active Substance: CLOPIDOGREL BISULFATE
  35. DESONIDE [Concomitant]
     Active Substance: DESONIDE
  36. AZITHROMYCIN [Concomitant]
     Active Substance: AZITHROMYCIN
  37. AZOPT [Concomitant]
     Active Substance: BRINZOLAMIDE
  38. SPIRONOLACTONE [Concomitant]
     Active Substance: SPIRONOLACTONE
  39. DULOXETINE HYDROCHLORIDE [Concomitant]
     Active Substance: DULOXETINE HYDROCHLORIDE
  40. WARFARIN [Concomitant]
     Active Substance: WARFARIN
  41. TIMOLOL MALEATE [Concomitant]
     Active Substance: TIMOLOL MALEATE
  42. BRIMONIDINE TARTRATE [Concomitant]
     Active Substance: BRIMONIDINE TARTRATE

REACTIONS (3)
  - Eye pain [Unknown]
  - Product administration error [Unknown]
  - Mydriasis [Recovering/Resolving]
